FAERS Safety Report 24938276 (Version 1)
Quarter: 2025Q1

REPORT INFORMATION
  Report Type: Spontaneous
  Country: US (occurrence: US)
  Receive Date: 20250206
  Receipt Date: 20250206
  Transmission Date: 20250409
  Serious: No
  Sender: MYLAN
  Company Number: US-MYLANLABS-2025M1008110

PATIENT
  Age: 67 Year
  Sex: Female

DRUGS (1)
  1. FENTANYL TRANSDERMAL SYSTEM [Suspect]
     Active Substance: FENTANYL
     Indication: Spinal operation
     Dosage: 25 MICROGRAM, QD (EVERY 24 HOURS)
     Route: 062
     Dates: start: 20250128

REACTIONS (2)
  - Off label use [Unknown]
  - Product adhesion issue [Unknown]

NARRATIVE: CASE EVENT DATE: 20250128
